FAERS Safety Report 13220192 (Version 1)
Quarter: 2017Q1

REPORT INFORMATION
  Report Type: Other
  Country: US (occurrence: US)
  Receive Date: 20170211
  Receipt Date: 20170211
  Transmission Date: 20170428
  Serious: No
  Sender: FDA-Public Use
  Company Number: US-ACORDA-ACO_128568_2016

PATIENT
  Age: 58 Year
  Sex: Female

DRUGS (2)
  1. TECFIDERA [Suspect]
     Active Substance: DIMETHYL FUMARATE
     Indication: PRODUCT USED FOR UNKNOWN INDICATION
     Dosage: UNK
     Route: 065
  2. AMPYRA [Suspect]
     Active Substance: DALFAMPRIDINE
     Indication: PRODUCT USED FOR UNKNOWN INDICATION
     Dosage: UNK
     Route: 065

REACTIONS (8)
  - Cough [None]
  - Gastrooesophageal reflux disease [Unknown]
  - Memory impairment [Unknown]
  - Nervousness [Unknown]
  - Throat irritation [None]
  - Nausea [Unknown]
  - Sleep disorder [Unknown]
  - Hiccups [Unknown]

NARRATIVE: CASE EVENT DATE: 201609
